FAERS Safety Report 8584379-5 (Version None)
Quarter: 2012Q3

REPORT INFORMATION
  Report Type: 
  Country: None (occurrence: None)
  Receive Date: 20120810
  Receipt Date: 20120802
  Transmission Date: 20120928
  Serious: No
  Sender: FDA-Public Use
  Company Number: US-BIOGENIDEC-2012BI024988

PATIENT
  Age: 48 Year

DRUGS (1)
  1. AVONEX [Suspect]
     Indication: MULTIPLE SCLEROSIS
     Route: 030
     Dates: start: 20120412

REACTIONS (7)
  - FATIGUE [None]
  - EMOTIONAL DISORDER [None]
  - FRUSTRATION [None]
  - POLLAKIURIA [None]
  - URINARY TRACT DISORDER [None]
  - VISUAL ACUITY REDUCED [None]
  - SKIN INFECTION [None]
